FAERS Safety Report 5581526-4 (Version None)
Quarter: 2008Q1

REPORT INFORMATION
  Report Type: 
  Country: None (occurrence: None)
  Receive Date: 20080104
  Receipt Date: 20070410
  Transmission Date: 20080703
  Serious: Yes (Other)
  Sender: FDA-Public Use
  Company Number: US-ASTRAZENECA-2007UW02153

PATIENT
  Age: 587 Month
  Sex: Female
  Weight: 82.3 kg

DRUGS (4)
  1. SEROQUEL [Suspect]
     Indication: MENTAL DISORDER
     Dosage: 25MG X 5/DAY
     Route: 048
     Dates: start: 19990101, end: 20060101
  2. SEROQUEL [Suspect]
     Indication: POST-TRAUMATIC STRESS DISORDER
     Dosage: 25MG X 5/DAY
     Route: 048
     Dates: start: 19990101, end: 20060101
  3. SEROQUEL [Suspect]
     Indication: BIPOLAR DISORDER
     Dosage: 25MG X 5/DAY
     Route: 048
     Dates: start: 19990101, end: 20060101
  4. CLOZARIL [Concomitant]
     Dosage: 3 X .1MG
     Dates: start: 20010101, end: 20060101

REACTIONS (4)
  - BLOOD CHOLESTEROL INCREASED [None]
  - FIBROMYALGIA [None]
  - SYSTEMIC LUPUS ERYTHEMATOSUS [None]
  - TYPE 2 DIABETES MELLITUS [None]
